FAERS Safety Report 6900314-7 (Version None)
Quarter: 2010Q3

REPORT INFORMATION
  Report Type: 
  Country: None (occurrence: None)
  Receive Date: 20100803
  Receipt Date: 20100721
  Transmission Date: 20110219
  Serious: Yes (Other)
  Sender: FDA-Public Use
  Company Number: PHHY2010CA46327

PATIENT
  Sex: Male

DRUGS (12)
  1. ALISKIREN ALI+ [Suspect]
     Indication: HYPERTENSION
     Dosage: 150 MG, QD
     Route: 048
     Dates: start: 20100516
  2. ALISKIREN ALI+ [Suspect]
     Dosage: 300 MG, UNK
     Route: 048
  3. CALCIUM CHANNEL BLOCKERS [Concomitant]
  4. ARA [Concomitant]
  5. CRESTOR [Concomitant]
     Dosage: 10 MG
     Dates: start: 20100501
  6. COZAAR [Concomitant]
     Dosage: 100 MG
     Dates: start: 20020101
  7. NORVASC [Concomitant]
     Dosage: 10 MG
     Dates: start: 20020101
  8. PLAMET [Concomitant]
     Dosage: 0.4
     Dates: start: 20080101
  9. GLYCIPHAGE [Concomitant]
     Dosage: 500 MG
     Dates: start: 20100501
  10. AVODART [Concomitant]
     Dosage: 0.5 G
     Dates: start: 20080101
  11. K-DUR [Concomitant]
     Dosage: 20
     Dates: start: 20080201
  12. NEXIUM [Concomitant]
     Dosage: 40 MG
     Dates: start: 20100501

REACTIONS (3)
  - ARRHYTHMIA [None]
  - BLOOD PRESSURE INADEQUATELY CONTROLLED [None]
  - CHEST DISCOMFORT [None]
